FAERS Safety Report 9905463 (Version 1)
Quarter: 2014Q1

REPORT INFORMATION
  Report Type: Spontaneous
  Country: VE (occurrence: VE)
  Receive Date: 20140218
  Receipt Date: 20140218
  Transmission Date: 20141002
  Serious: Yes (Death, Hospitalization)
  Sender: FDA-Public Use
  Company Number: VE-SA-2014SA018471

PATIENT
  Sex: Female

DRUGS (3)
  1. ARAVA [Suspect]
     Indication: RHEUMATOID ARTHRITIS
     Dosage: DOSE:100 MG DAILY FOR 3 DAYS AND THEN 20 MG DAILY FOR 20 DAYS
     Route: 048
     Dates: start: 2013, end: 201309
  2. ALL OTHER THERAPEUTIC PRODUCTS [Concomitant]
  3. CORTICOSTEROID NOS [Concomitant]

REACTIONS (6)
  - Death [Fatal]
  - Jaundice [Unknown]
  - Blood bilirubin increased [Unknown]
  - Hepatic failure [Unknown]
  - Abdominal discomfort [Unknown]
  - Nausea [Unknown]
